FAERS Safety Report 5287868-4 (Version None)
Quarter: 2007Q2

REPORT INFORMATION
  Report Type: 
  Country: None (occurrence: None)
  Receive Date: 20070405
  Receipt Date: 20070329
  Transmission Date: 20071010
  Serious: Yes (Disabling, Other)
  Sender: FDA-Public Use
  Company Number: FR-SHR-FR-2007-011089

PATIENT
  Age: 34 Year
  Sex: Female

DRUGS (1)
  1. MIRENA [Suspect]
     Dosage: 20 A?G/DAY, CONT
     Route: 015
     Dates: start: 20040801, end: 20050801

REACTIONS (5)
  - CEREBROVASCULAR ACCIDENT [None]
  - COMA [None]
  - HEMIANOPIA [None]
  - HEMIPLEGIA [None]
  - VERTIGO [None]
